FAERS Safety Report 23114460 (Version 1)
Quarter: 2023Q4

REPORT INFORMATION
  Report Type: Spontaneous
  Country: IT (occurrence: None)
  Receive Date: 20231027
  Receipt Date: 20231027
  Transmission Date: 20240109
  Serious: Yes (Life-Threatening, Hospitalization)
  Sender: FDA-Public Use
  Company Number: 2023A240861

PATIENT
  Age: 62 Week
  Sex: Male
  Weight: 120 kg

DRUGS (3)
  1. XIGDUO XR [Suspect]
     Active Substance: DAPAGLIFLOZIN PROPANEDIOL\METFORMIN HYDROCHLORIDE
     Indication: Diabetes mellitus
     Dosage: XGIDUO 5+850 UN CP H 8 E UN CP H 20
     Route: 048
     Dates: start: 20230620, end: 20230719
  2. EZETIMIBE\ROSUVASTATIN CALCIUM [Suspect]
     Active Substance: EZETIMIBE\ROSUVASTATIN CALCIUM
     Indication: Hypercholesterolaemia
     Dosage: ROSUMIBE 20+10 UN CP H 21,
     Route: 048
     Dates: start: 20230620, end: 20230719
  3. EZETIMIBE\ROSUVASTATIN CALCIUM [Suspect]
     Active Substance: EZETIMIBE\ROSUVASTATIN CALCIUM
     Indication: Aortic stent insertion
     Dosage: ROSUMIBE 20+10 UN CP H 21,
     Route: 048
     Dates: start: 20230620, end: 20230719

REACTIONS (2)
  - Rhabdomyolysis [Not Recovered/Not Resolved]
  - Acute kidney injury [Not Recovered/Not Resolved]

NARRATIVE: CASE EVENT DATE: 20230617
